FAERS Safety Report 9275825 (Version 5)
Quarter: 2014Q3

REPORT INFORMATION
  Report Type: Spontaneous
  Country: US (occurrence: US)
  Receive Date: 20130507
  Receipt Date: 20140806
  Transmission Date: 20150326
  Serious: Yes (Hospitalization, Other)
  Sender: FDA-Public Use
  Company Number: US-BAYER-2013-055420

PATIENT
  Age: 28 Year
  Sex: Female
  Weight: 49.89 kg

DRUGS (9)
  1. KEFLEX [Concomitant]
     Active Substance: CEPHALEXIN
  2. PERCOCET [Concomitant]
     Active Substance: ACETAMINOPHEN\OXYCODONE HYDROCHLORIDE
  3. FLAGYL [Concomitant]
     Active Substance: METRONIDAZOLE\METRONIDAZOLE HYDROCHLORIDE
  4. MOTRIN [Concomitant]
     Active Substance: IBUPROFEN
  5. AMPICILLIN [Concomitant]
     Active Substance: AMPICILLIN
  6. GENTAMYCIN [Concomitant]
     Active Substance: GENTAMICIN
  7. DOXYCYCLINE. [Concomitant]
     Active Substance: DOXYCYCLINE
  8. MIRENA [Suspect]
     Active Substance: LEVONORGESTREL
     Indication: CONTRACEPTION
     Dosage: 20 MCG/24HR, CONT
     Route: 015
     Dates: start: 200605, end: 201105
  9. CLINDAMYCIN [Concomitant]
     Active Substance: CLINDAMYCIN\CLINDAMYCIN PHOSPHATE

REACTIONS (13)
  - Genital haemorrhage [None]
  - Gastric infection [None]
  - Device issue [None]
  - Pain [None]
  - Uterine perforation [None]
  - Menometrorrhagia [Recovered/Resolved]
  - Abdominal distension [None]
  - Infection [None]
  - Uterine infection [None]
  - Fatigue [Recovered/Resolved]
  - Infertility female [None]
  - Cervicitis [None]
  - Pain [Recovered/Resolved]

NARRATIVE: CASE EVENT DATE: 2011
